FAERS Safety Report 20129960 (Version 1)
Quarter: 2021Q4

REPORT INFORMATION
  Report Type: Spontaneous
  Country: US (occurrence: US)
  Receive Date: 20211130
  Receipt Date: 20211130
  Transmission Date: 20220303
  Serious: Yes (Other)
  Sender: FDA-Public Use
  Company Number: US-GLAXOSMITHKLINE-US2021GSK243986

PATIENT
  Sex: Female

DRUGS (4)
  1. RANITIDINE [Suspect]
     Active Substance: RANITIDINE
     Indication: Tracheal stenosis
     Dosage: 150 MG, QD
     Route: 065
     Dates: start: 201701, end: 201701
  2. RANITIDINE [Suspect]
     Active Substance: RANITIDINE
     Indication: Polychondritis
  3. RANITIDINE [Suspect]
     Active Substance: RANITIDINE
     Indication: Tracheal stenosis
     Dosage: 150 MG, QD
     Route: 065
     Dates: start: 201701, end: 201701
  4. RANITIDINE [Suspect]
     Active Substance: RANITIDINE
     Indication: Polychondritis

REACTIONS (1)
  - Breast cancer [Unknown]
